FAERS Safety Report 14708186 (Version 14)
Quarter: 2022Q4

REPORT INFORMATION
  Report Type: Report from Study
  Country: CA (occurrence: CA)
  Receive Date: 20180403
  Receipt Date: 20221109
  Transmission Date: 20230113
  Serious: Yes (Hospitalization, Other)
  Sender: FDA-Public Use
  Company Number: PHHY2010CA31063

PATIENT
  Sex: Male

DRUGS (29)
  1. SANDOSTATIN LAR DEPOT [Suspect]
     Active Substance: OCTREOTIDE ACETATE
     Indication: Acromegaly
     Dosage: 30 MG, QMO (EVERY 4 WEEKS, ONCE A MONTH)
     Route: 030
     Dates: start: 20050415, end: 2007
  2. SANDOSTATIN LAR DEPOT [Suspect]
     Active Substance: OCTREOTIDE ACETATE
     Dosage: 30 MG, QMO
     Route: 030
  3. SANDOSTATIN LAR DEPOT [Suspect]
     Active Substance: OCTREOTIDE ACETATE
     Dosage: 30 MG, QMO (EVERY 4 WEEKS)
     Route: 030
  4. SANDOSTATIN LAR DEPOT [Suspect]
     Active Substance: OCTREOTIDE ACETATE
     Dosage: 30 MG, QMO
     Route: 030
  5. SANDOSTATIN LAR DEPOT [Suspect]
     Active Substance: OCTREOTIDE ACETATE
     Dosage: 30 MG, QMO
     Route: 030
     Dates: start: 20190219
  6. SANDOSTATIN LAR DEPOT [Suspect]
     Active Substance: OCTREOTIDE ACETATE
     Dosage: 30 MG, QMO
     Route: 030
     Dates: start: 20200414
  7. SANDOSTATIN LAR DEPOT [Suspect]
     Active Substance: OCTREOTIDE ACETATE
     Dosage: 30 MG, QMO
     Route: 030
     Dates: start: 2011
  8. LEVEMIR [Concomitant]
     Active Substance: INSULIN DETEMIR
     Indication: Product used for unknown indication
     Dosage: UNK, QHS (32 ENZYME UNIT)
     Route: 058
  9. NOVORAPID [Concomitant]
     Active Substance: INSULIN ASPART
     Indication: Product used for unknown indication
     Dosage: UNK (16 ENZYME UNIT) (14 TO 16 ENZYME UNIT, Q MEAL)
     Route: 058
  10. NOVORAPID [Concomitant]
     Active Substance: INSULIN ASPART
     Dosage: UNK (28-28-24 TID)
     Route: 065
     Dates: start: 20180720
  11. NOVORAPID [Concomitant]
     Active Substance: INSULIN ASPART
     Dosage: UNK (20-24 UNIT (Q MEAL))
     Route: 065
  12. CRESTOR [Concomitant]
     Active Substance: ROSUVASTATIN CALCIUM
     Indication: Product used for unknown indication
     Dosage: UNK, QHS (40 OT)
     Route: 048
  13. METFORMIN [Concomitant]
     Active Substance: METFORMIN HYDROCHLORIDE
     Indication: Product used for unknown indication
     Dosage: UNK
     Route: 065
  14. METFORMIN [Concomitant]
     Active Substance: METFORMIN HYDROCHLORIDE
     Dosage: 850 MG, BID
     Route: 065
  15. METFORMIN [Concomitant]
     Active Substance: METFORMIN HYDROCHLORIDE
     Dosage: 250 MG, QD (PER DAY X 1 WEEK)
     Route: 065
     Dates: start: 2019, end: 2019
  16. METFORMIN [Concomitant]
     Active Substance: METFORMIN HYDROCHLORIDE
     Dosage: 500 MG, QD
     Route: 065
  17. FOSINOPRIL [Concomitant]
     Active Substance: FOSINOPRIL
     Indication: Product used for unknown indication
     Dosage: UNK, QD (10 MG)
     Route: 048
  18. FOSINOPRIL [Concomitant]
     Active Substance: FOSINOPRIL
     Dosage: 1 DOSAGE FORM, QD (20 MG)
     Route: 065
  19. ROSUVASTATIN CALCIUM [Concomitant]
     Active Substance: ROSUVASTATIN CALCIUM
     Indication: Product used for unknown indication
     Dosage: UNK, QD (1 AT BEDTIME)
     Route: 065
  20. LAMISIL [Concomitant]
     Active Substance: TERBINAFINE HYDROCHLORIDE
     Indication: Product used for unknown indication
     Dosage: UNK, BID
     Route: 061
  21. VITAMIN D [Concomitant]
     Active Substance: VITAMIN D NOS
     Indication: Product used for unknown indication
     Dosage: UNK, QW (10000 UI)
     Route: 065
  22. TRESIBA [Concomitant]
     Active Substance: INSULIN DEGLUDEC
     Indication: Product used for unknown indication
     Dosage: UNK, QD (30 ENZYME UNIT)
     Route: 058
  23. TRESIBA [Concomitant]
     Active Substance: INSULIN DEGLUDEC
     Dosage: UNK, QD (33 UNIT)
     Route: 058
  24. FINASTERIDE [Concomitant]
     Active Substance: FINASTERIDE
     Indication: Product used for unknown indication
     Dosage: UNK, QD
     Route: 048
     Dates: start: 2019
  25. JANUVIA [Concomitant]
     Active Substance: SITAGLIPTIN PHOSPHATE
     Indication: Product used for unknown indication
     Dosage: 1 DOSAGE FORM, QD
     Route: 048
  26. TAMSULOSIN [Concomitant]
     Active Substance: TAMSULOSIN
     Indication: Product used for unknown indication
     Dosage: UNK, BID
     Route: 065
  27. LOPROX [Concomitant]
     Active Substance: CICLOPIROX\CICLOPIROX OLAMINE
     Indication: Product used for unknown indication
     Dosage: UNK
     Route: 065
  28. LEVOFLOXACIN [Concomitant]
     Active Substance: LEVOFLOXACIN
     Indication: Product used for unknown indication
     Dosage: 500 MG (1 TABLET PER DAY FOR 10 DAYS)
     Route: 065
  29. LOVENOX [Concomitant]
     Active Substance: ENOXAPARIN SODIUM
     Indication: Product used for unknown indication
     Dosage: 0.5 ML (UNTIL SEPTEMBER 27)
     Route: 058

REACTIONS (27)
  - Diverticulitis [Unknown]
  - Nephrolithiasis [Unknown]
  - Urinary tract infection bacterial [Unknown]
  - Blood pressure increased [Unknown]
  - Pain in extremity [Unknown]
  - Body temperature decreased [Unknown]
  - Influenza [Recovering/Resolving]
  - Oropharyngeal pain [Not Recovered/Not Resolved]
  - Blood pressure systolic increased [Unknown]
  - Cough [Unknown]
  - Nasopharyngitis [Unknown]
  - Emotional disorder [Unknown]
  - Blood pressure decreased [Unknown]
  - Gastritis [Unknown]
  - Arthralgia [Unknown]
  - Wound [Recovering/Resolving]
  - Phlebitis [Unknown]
  - Blood testosterone decreased [Unknown]
  - Abdominal pain [Recovering/Resolving]
  - Diarrhoea [Recovering/Resolving]
  - Dizziness [Unknown]
  - Fatigue [Unknown]
  - Anxiety [Unknown]
  - Depression [Unknown]
  - Abdominal pain upper [Recovered/Resolved]
  - Needle issue [Unknown]
  - Product deposit [Unknown]

NARRATIVE: CASE EVENT DATE: 20150101
